FAERS Safety Report 8152236-4 (Version None)
Quarter: 2012Q1

REPORT INFORMATION
  Report Type: 
  Country: None (occurrence: None)
  Receive Date: 20120214
  Receipt Date: 20100906
  Transmission Date: 20120608
  Serious: Yes (Other)
  Sender: FDA-Public Use
  Company Number: AU-2010-09-000541

PATIENT
  Age: 17 Year
  Sex: Female

DRUGS (1)
  1. ERYTHROMYCIN [Suspect]
     Dosage: 1.5 G
     Dates: start: 20100731, end: 20100802

REACTIONS (1)
  - PANCREATITIS [None]
